FAERS Safety Report 7794962-2 (Version None)
Quarter: 2011Q4

REPORT INFORMATION
  Report Type: 
  Country: None (occurrence: None)
  Receive Date: 20111003
  Receipt Date: 20111003
  Transmission Date: 20120403
  Serious: Yes (Hospitalization)
  Sender: FDA-Public Use
  Company Number: None

PATIENT
  Age: 58 Year
  Sex: Male

DRUGS (3)
  1. LISINOPRIL [Suspect]
  2. LITHIUM CARBONATE [Suspect]
     Dates: start: 20031030, end: 20100418
  3. IBUPROFEN [Suspect]

REACTIONS (6)
  - LETHARGY [None]
  - ASTHENIA [None]
  - BLOOD CREATININE INCREASED [None]
  - BLOOD UREA INCREASED [None]
  - DRUG INTERACTION [None]
  - ANTIPSYCHOTIC DRUG LEVEL INCREASED [None]
